FAERS Safety Report 5008010-0 (Version None)
Quarter: 2006Q2

REPORT INFORMATION
  Report Type: 
  Country: None (occurrence: None)
  Receive Date: 20060518
  Receipt Date: 20060505
  Transmission Date: 20061013
  Serious: Yes (Death, Hospitalization)
  Sender: FDA-Public Use
  Company Number: 2006061051

PATIENT
  Sex: Male

DRUGS (6)
  1. DOXORUBICIN (DOXORUBICIN) [Suspect]
     Indication: HODGKIN'S DISEASE
     Dosage: (48 MG,  1 IN 1 CYCLICAL), INTRAVENOUS
     Route: 042
     Dates: start: 20051102, end: 20060223
  2. BLEOMYCIN [Suspect]
     Indication: HODGKIN'S DISEASE
     Dosage: (19 MG, 1 IN 1 CYCLICAL), INTRAVENOUS
     Route: 042
     Dates: start: 20051102, end: 20060223
  3. METHYLPREDNISOLONE [Suspect]
     Indication: HODGKIN'S DISEASE
     Dosage: (237 MG, 1 IN 1 CYCLICAL), INTRAVENOUS
     Dates: start: 20051102
  4. VINBLASTINE SULFATE [Suspect]
     Indication: HODGKIN'S DISEASE
     Dosage: (11 MG, 1 IN 1 CYCLICAL), INTRAVENOUS
     Route: 042
     Dates: start: 20051102, end: 20060223
  5. DACARBAZINE [Suspect]
     Indication: HODGKIN'S DISEASE
     Dosage: (710 MG), INTRAVENOUS
     Route: 042
     Dates: start: 20051102, end: 20060223
  6. POLARAMINE [Suspect]
     Indication: ILL-DEFINED DISORDER
     Dosage: (5 MG, 1 IN 1CYCLICAL), INTRAVENOUS
     Route: 042
     Dates: start: 20051102, end: 20060223

REACTIONS (4)
  - BRONCHIECTASIS [None]
  - HYPOXIA [None]
  - INTERSTITIAL LUNG DISEASE [None]
  - PULMONARY FIBROSIS [None]
